FAERS Safety Report 5319980-5 (Version None)
Quarter: 2007Q2

REPORT INFORMATION
  Report Type: 
  Country: None (occurrence: None)
  Receive Date: 20070509
  Receipt Date: 20070504
  Transmission Date: 20071010
  Serious: Yes (Hospitalization)
  Sender: FDA-Public Use
  Company Number: US-ELI_LILLY_AND_COMPANY-US200705001414

PATIENT
  Age: 68 Year
  Sex: Female

DRUGS (2)
  1. GEMZAR [Suspect]
     Indication: OVARIAN CANCER
     Dosage: 1000 MG/M2, OTHER
     Route: 042
  2. CARBOPLATIN [Concomitant]
     Indication: OVARIAN CANCER
     Dosage: 5 UNK, OTHER

REACTIONS (1)
  - PARANEOPLASTIC SYNDROME [None]
